FAERS Safety Report 4346746-5 (Version None)
Quarter: 2004Q1

REPORT INFORMATION
  Report Type: 
  Country: None (occurrence: None)
  Receive Date: 20040329
  Receipt Date: 20040122
  Transmission Date: 20041129
  Serious: No
  Sender: FDA-Public Use
  Company Number: USA040157358

PATIENT
  Age: 16 Year
  Sex: Male
  Weight: 82 kg

DRUGS (1)
  1. STRATTERA [Suspect]
     Dates: start: 20030101, end: 20030101

REACTIONS (6)
  - ABNORMAL BEHAVIOUR [None]
  - DIZZINESS [None]
  - DRUG INEFFECTIVE [None]
  - MOOD ALTERED [None]
  - NEGATIVISM [None]
  - WEIGHT DECREASED [None]
